FAERS Safety Report 5022334-2 (Version None)
Quarter: 2006Q2

REPORT INFORMATION
  Report Type: 
  Country: None (occurrence: None)
  Receive Date: 20060609
  Receipt Date: 20060601
  Transmission Date: 20061013
  Serious: Yes (Death)
  Sender: FDA-Public Use
  Company Number: US-JNJFOC-20040103204

PATIENT
  Sex: Male

DRUGS (3)
  1. REMICADE [Suspect]
     Indication: RHEUMATOID ARTHRITIS
     Route: 042
  2. ECOTRIN [Concomitant]
  3. PREDNISONE [Concomitant]

REACTIONS (4)
  - ANEURYSM [None]
  - CARDIAC ARREST [None]
  - HYPOTENSION [None]
  - SHOCK [None]
